FAERS Safety Report 22118233 (Version 1)
Quarter: 2023Q1

REPORT INFORMATION
  Report Type: Spontaneous
  Country: US (occurrence: None)
  Receive Date: 20230321
  Receipt Date: 20230321
  Transmission Date: 20230417
  Serious: Yes (Other)
  Sender: FDA-Public Use
  Company Number: US-ROCHE-3305908

PATIENT
  Sex: Female
  Weight: 50.848 kg

DRUGS (3)
  1. OCREVUS [Suspect]
     Active Substance: OCRELIZUMAB
     Indication: Relapsing-remitting multiple sclerosis
     Dosage: YES
     Route: 042
  2. VITAMIN D [Concomitant]
     Active Substance: VITAMIN D NOS
  3. SYMBICORT [Concomitant]
     Active Substance: BUDESONIDE\FORMOTEROL FUMARATE DIHYDRATE
     Dosage: TAKES 1 PUFF TWO TIMES DAILY

REACTIONS (6)
  - Upper respiratory tract infection [Recovered/Resolved]
  - COVID-19 [Recovered/Resolved]
  - Oxygen saturation decreased [Unknown]
  - Respiration abnormal [Not Recovered/Not Resolved]
  - Multiple sclerosis relapse [Unknown]
  - Asthma [Unknown]

NARRATIVE: CASE EVENT DATE: 20221101
